FAERS Safety Report 6227358-5 (Version None)
Quarter: 2009Q2

REPORT INFORMATION
  Report Type: 
  Country: None (occurrence: None)
  Receive Date: 20090610
  Receipt Date: 20090527
  Transmission Date: 20091009
  Serious: Yes (Other)
  Sender: FDA-Public Use
  Company Number: BVT-000084

PATIENT
  Sex: Male

DRUGS (1)
  1. PALIFERMIN (PALIFERMIN) 600 MCG [Suspect]
     Dosage: 600 MCG QD SUBCUTANEOUS
     Route: 058
     Dates: start: 20081003, end: 20081005

REACTIONS (4)
  - BLISTER [None]
  - PAIN IN EXTREMITY [None]
  - RASH [None]
  - WOUND SECRETION [None]
